FAERS Safety Report 10465768 (Version 2)
Quarter: 2014Q3

REPORT INFORMATION
  Report Type: Spontaneous
  Country: BR (occurrence: BR)
  Receive Date: 20140921
  Receipt Date: 20140921
  Transmission Date: 20150326
  Serious: Yes (Hospitalization, Other)
  Sender: FDA-Public Use
  Company Number: PHHY2014BR110515

PATIENT
  Sex: Male
  Weight: 83 kg

DRUGS (5)
  1. TRILEPTAL [Suspect]
     Active Substance: OXCARBAZEPINE
     Dosage: UNK (TRILEPTAL 300 MG)
  2. FRISIUM [Concomitant]
     Active Substance: CLOBAZAM
     Indication: EPILEPSY
     Dosage: 3 DF (3 TABLETS), DAILY
     Route: 048
  3. TOPAMAX [Concomitant]
     Active Substance: TOPIRAMATE
     Indication: EPILEPSY
     Dosage: 3 DF (3 TABLETS), DAILY
     Route: 048
  4. TRILEPTAL [Suspect]
     Active Substance: OXCARBAZEPINE
     Indication: EPILEPSY
     Dosage: UNK (TRILEPTAL 300 MG)
  5. TRILEPTAL [Suspect]
     Active Substance: OXCARBAZEPINE
     Dosage: 1 DF (1 TABLET OF 600MG), TID
     Route: 048
     Dates: start: 20140829

REACTIONS (7)
  - Dyspnoea [Recovered/Resolved]
  - Epilepsy [Recovered/Resolved]
  - Hypersensitivity [Recovered/Resolved]
  - Anxiety disorder [Not Recovered/Not Resolved]
  - Depression [Not Recovered/Not Resolved]
  - Cellulitis [Unknown]
  - Pruritus generalised [Recovered/Resolved]
